FAERS Safety Report 12934043 (Version 2)
Quarter: 2016Q4

REPORT INFORMATION
  Report Type: Spontaneous
  Country: NL (occurrence: NL)
  Receive Date: 20161111
  Receipt Date: 20161129
  Transmission Date: 20170207
  Serious: Yes (Hospitalization)
  Sender: FDA-Public Use
  Company Number: NL-TEVA-710484ACC

PATIENT
  Age: 65 Year
  Sex: Female
  Weight: 55 kg

DRUGS (11)
  1. PANTOPRAZOL TABLET MSR 40MG [Concomitant]
     Active Substance: PANTOPRAZOLE SODIUM
     Dosage: 40 MILLIGRAM DAILY; 1 TIME PER DAY (BEFORE THE MEAL) 40 MG
     Route: 048
  2. ZYRTEC TABLET FILMOMHULD 10MG [Concomitant]
     Dosage: 5 MILLIGRAM DAILY; 1 TIME PER DAY 0,5 TABLETS
     Route: 048
  3. EMLA HYDROFIELE CREME 50MG/G [Concomitant]
     Dosage: ACCORDING INSTRUCTION 1G APPLYING ON THE SKIN
     Route: 003
  4. METHOTREXATE (METHOTREXATE SODIUM) [Suspect]
     Active Substance: METHOTREXATE SODIUM
     Indication: RHEUMATOID ARTHRITIS
     Dosage: 1 TIME PER WEEK 2 PIECE(S), EXTRA INFO: 5 MG
     Route: 048
     Dates: start: 20160929, end: 20161011
  5. ARANESP   40 INJVLST 100MCG/ML WWSP 0,4ML [Concomitant]
     Dosage: DURING DIALYSIS
     Route: 065
  6. ETALPHA LEO CAPSULE 0,25MCG [Concomitant]
     Dosage: DURING DIALYSIS
     Route: 048
  7. RENVELA TABLET FILMOMHULD 800MG [Concomitant]
     Dosage: 7200 MILLIGRAM DAILY; 3 TIMES PER DAY (DURING THE MEAL) 3 TABLETS
     Route: 048
  8. FOLIUMZUUR TABLET 5MG [Concomitant]
     Active Substance: FOLIC ACID
     Dosage: 1 TIME PER WEEK 2 TABLETS
     Route: 048
  9. FERINJECT INJVLST 50MG/ML FLACON  2ML [Concomitant]
     Dosage: 1 TIME PER WEEK 100MG ACCORDING INSTRUCTION INJECTOR
     Route: 065
  10. CALCI CHEW KAUWTABLET  500MG [Concomitant]
     Dosage: 1500 MILLIGRAM DAILY; 3 TIMES PER DAY 1 TABLET
     Route: 048
  11. MULTIVITAMINE VOOR DIALYSE CAPSULE (ADDED/UMCG) [Concomitant]
     Dosage: 1 DOSAGE FORMS DAILY; 1 TIME PER DAY 1 CAPSULE
     Route: 048

REACTIONS (5)
  - Thrombocytopenia [Recovered/Resolved]
  - Petechiae [Recovered/Resolved]
  - Pancytopenia [Recovered/Resolved]
  - Febrile neutropenia [Recovered/Resolved]
  - Stomatitis [Recovered/Resolved]

NARRATIVE: CASE EVENT DATE: 20161016
